FAERS Safety Report 19449135 (Version 1)
Quarter: 2021Q2

REPORT INFORMATION
  Report Type: Spontaneous
  Country: US (occurrence: US)
  Receive Date: 20210622
  Receipt Date: 20210622
  Transmission Date: 20210717
  Serious: No
  Sender: FDA-Public Use
  Company Number: US-SA-2021SA201097

PATIENT
  Sex: Female

DRUGS (1)
  1. DUPIXENT [Suspect]
     Active Substance: DUPILUMAB
     Indication: CHRONIC RHINOSINUSITIS WITH NASAL POLYPS
     Dosage: 300 MG, QOW
     Route: 058
     Dates: start: 20210524

REACTIONS (8)
  - Diarrhoea [Unknown]
  - Bone disorder [Unknown]
  - Gastritis [Unknown]
  - Dyspepsia [Unknown]
  - Lichen planus [Unknown]
  - Ocular discomfort [Unknown]
  - Eating disorder [Unknown]
  - Condition aggravated [Unknown]
